FAERS Safety Report 9091778 (Version 1)
Quarter: 2013Q1

REPORT INFORMATION
  Report Type: Report from Study
  Country: US (occurrence: US)
  Receive Date: 20130201
  Receipt Date: 20130201
  Transmission Date: 20140127
  Serious: No
  Sender: FDA-Public Use
  Company Number: US-ABBOTT-12P-163-1027332-00

PATIENT
  Age: 28 Year
  Sex: Male

DRUGS (7)
  1. HUMIRA [Suspect]
     Indication: PSORIATIC ARTHROPATHY
     Dates: start: 20121120, end: 20121201
  2. HYDROCHLOROTHIAZIDE [Concomitant]
     Indication: BLOOD PRESSURE
     Dosage: DOESN^T REMEMBER DOSAGE
  3. LISINOPRIL [Concomitant]
     Indication: BLOOD PRESSURE
  4. AMLODIPINE [Concomitant]
     Indication: BLOOD PRESSURE
     Dosage: DOESN^T KNOW DOSAGE
  5. ZYRTEC [Concomitant]
     Indication: HYPERSENSITIVITY
     Dosage: DOESN^T KNOW DOSAGE
  6. MULTIPLE VITAMINS [Concomitant]
     Indication: PRODUCT USED FOR UNKNOWN INDICATION
  7. FISH OIL [Concomitant]
     Indication: PRODUCT USED FOR UNKNOWN INDICATION

REACTIONS (2)
  - Pharyngitis streptococcal [Unknown]
  - Nasopharyngitis [Unknown]
